FAERS Safety Report 9888012 (Version 2)
Quarter: 2014Q2

REPORT INFORMATION
  Report Type: Spontaneous
  Country: JP (occurrence: JP)
  Receive Date: 20140211
  Receipt Date: 20140411
  Transmission Date: 20141212
  Serious: Yes (Hospitalization)
  Sender: FDA-Public Use
  Company Number: JP-BAYER-2014-018617

PATIENT
  Age: 65 Year
  Sex: Male
  Weight: 90 kg

DRUGS (6)
  1. STIVARGA [Suspect]
     Indication: COLON CANCER
     Dosage: 160 MG, QD
     Route: 048
     Dates: start: 20140114, end: 20140203
  2. BLOPRESS [Concomitant]
     Dosage: DAILY DOSE 12 MG
     Route: 048
  3. NORVASC [Concomitant]
     Dosage: DAILY DOSE 7.5 MG
     Route: 048
  4. OXYCONTIN [Concomitant]
     Dosage: DAILY DOSE 20 MG
     Route: 048
  5. NOVAMIN [Concomitant]
     Dosage: DAILY DOSE 10 MG
     Route: 048
  6. MAGMITT [Concomitant]
     Dosage: DAILY DOSE 600 MG
     Route: 048

REACTIONS (3)
  - Genital erosion [Unknown]
  - Dysphonia [Recovered/Resolved]
  - Skin disorder [Recovering/Resolving]
